FAERS Safety Report 5814313-X (Version None)
Quarter: 2008Q3

REPORT INFORMATION
  Report Type: 
  Country: None (occurrence: None)
  Receive Date: 20080711
  Receipt Date: 20080701
  Transmission Date: 20090109
  Serious: Yes (Other)
  Sender: FDA-Public Use
  Company Number: S07-USA-01512-01

PATIENT
  Age: 64 Year
  Sex: Male

DRUGS (12)
  1. LEXAPRO [Suspect]
     Indication: ANXIETY
     Dosage: 10 MG QD PO
     Route: 048
     Dates: start: 20070318, end: 20070901
  2. LEXAPRO [Suspect]
     Indication: DEPRESSION
     Dosage: 10 MG QD PO
     Route: 048
     Dates: start: 20070318, end: 20070901
  3. LEXAPRO [Suspect]
     Indication: ANXIETY
     Dosage: 20 MG QD PO
     Route: 048
     Dates: start: 20070901
  4. LEXAPRO [Suspect]
     Indication: DEPRESSION
     Dosage: 20 MG QD PO
     Route: 048
     Dates: start: 20070901
  5. LEXAPRO [Suspect]
     Indication: ANXIETY
     Dosage: 5 MG QD PO
     Route: 048
     Dates: start: 20070314, end: 20070317
  6. LEXAPRO [Suspect]
     Indication: DEPRESSION
     Dosage: 5 MG QD PO
     Route: 048
     Dates: start: 20070314, end: 20070317
  7. AMBIEN [Concomitant]
  8. CYMBALTA [Concomitant]
  9. CLONAZEPAM [Concomitant]
  10. HYZAAR (LOSARTAN/HYDROCHLOROTHIAZIDE) [Concomitant]
  11. ASPIRIN [Concomitant]
  12. KLONOPIN [Concomitant]

REACTIONS (9)
  - BLOOD PRESSURE DIASTOLIC INCREASED [None]
  - DEPRESSION [None]
  - DRUG INEFFECTIVE [None]
  - EJACULATION FAILURE [None]
  - OPTIC ISCHAEMIC NEUROPATHY [None]
  - PAPILLOEDEMA [None]
  - SOMNOLENCE [None]
  - VISUAL IMPAIRMENT [None]
  - WEIGHT INCREASED [None]
